FAERS Safety Report 23924759 (Version 1)
Quarter: 2024Q2

REPORT INFORMATION
  Report Type: Spontaneous
  Country: PT (occurrence: PT)
  Receive Date: 20240531
  Receipt Date: 20240531
  Transmission Date: 20240715
  Serious: Yes (Life-Threatening, Hospitalization)
  Sender: FDA-Public Use
  Company Number: None

PATIENT
  Age: 47 Year
  Sex: Male
  Weight: 85 kg

DRUGS (6)
  1. DOXORUBICIN [Suspect]
     Active Substance: DOXORUBICIN
     Indication: Hodgkin^s disease
     Dosage: PEMBROLIZUMAB 200MG, GEMCITABINE 1000MG/M2, DOXORUBICIN 15MG/M2 AND VINORRELBINE 20MG/M2 CARRIED ...
     Route: 065
     Dates: start: 20240301, end: 20240427
  2. KEYTRUDA [Suspect]
     Active Substance: PEMBROLIZUMAB
     Indication: Hodgkin^s disease
     Dosage: PEMBROLIZUMAB 200MG, GEMCITABINE 1000MG/M2, DOXORUBICIN 15MG/M2 AND VINORRELBINE 20MG/M2 CARRIED ...
     Route: 042
     Dates: start: 20240301, end: 20240427
  3. ESCITALOPRAM [Concomitant]
     Active Substance: ESCITALOPRAM OXALATE
     Indication: Product used for unknown indication
     Route: 065
  4. VINORELBINE [Suspect]
     Active Substance: VINORELBINE TARTRATE
     Indication: Hodgkin^s disease
     Dosage: PEMBROLIZUMAB 200MG, GEMCITABINE 1000MG/M2, DOXORUBICIN 15MG/M2 AND VINORRELBINE 20MG/M2 CARRIED ...
     Route: 065
     Dates: start: 20240301, end: 20240427
  5. GEMCITABINE [Suspect]
     Active Substance: GEMCITABINE
     Indication: Hodgkin^s disease
     Dosage: PEMBROLIZUMAB 200MG, GEMCITABINE 1000MG/M2, DOXORUBICIN 15MG/M2 AND VINORRELBINE 20MG/M2 CARRIED ...
     Route: 065
     Dates: start: 20240301, end: 20240427
  6. OMEPRAZOLE [Concomitant]
     Active Substance: DONEPEZIL HYDROCHLORIDE\OMEPRAZOLE\OMEPRAZOLE MAGNESIUM
     Indication: Product used for unknown indication
     Route: 065

REACTIONS (1)
  - Pneumonitis [Recovering/Resolving]

NARRATIVE: CASE EVENT DATE: 20240416
